FAERS Safety Report 6508718-1 (Version None)
Quarter: 2009Q4

REPORT INFORMATION
  Report Type: 
  Country: None (occurrence: None)
  Receive Date: 20091221
  Receipt Date: 20090731
  Transmission Date: 20100525
  Serious: No
  Sender: FDA-Public Use
  Company Number: US-ASTRAZENECA-2009SE06511

PATIENT
  Age: 71 Year
  Sex: Female
  Weight: 68 kg

DRUGS (5)
  1. CRESTOR [Suspect]
     Route: 048
     Dates: start: 20090301
  2. CRESTOR [Suspect]
     Route: 048
  3. EXFORGE [Concomitant]
  4. TOPROL-XL [Concomitant]
  5. SYNTHROID [Concomitant]

REACTIONS (4)
  - COUGH [None]
  - PRURITUS [None]
  - SWELLING FACE [None]
  - URTICARIA [None]
